FAERS Safety Report 9667621 (Version 2)
Quarter: 2014Q3

REPORT INFORMATION
  Report Type: Spontaneous
  Country: FR (occurrence: FR)
  Receive Date: 20131104
  Receipt Date: 20140924
  Transmission Date: 20150326
  Serious: Yes (Other)
  Sender: FDA-Public Use
  Company Number: FR-PFIZER INC-2013309646

PATIENT
  Age: 28 Year
  Sex: Female
  Weight: 63 kg

DRUGS (7)
  1. CYTOTEC [Suspect]
     Active Substance: MISOPROSTOL
     Indication: LABOUR INDUCTION
     Dosage: 50 UG (1/4 TABLET),
     Route: 067
     Dates: start: 20110504
  2. CYTOTEC [Suspect]
     Active Substance: MISOPROSTOL
     Dosage: 50 UG (1/4 TABLET),
     Route: 067
     Dates: start: 20110504
  3. CEFAZOLIN [Concomitant]
     Active Substance: CEFAZOLIN
     Dosage: 2 G, UNK
  4. SYNTOCINON [Suspect]
     Active Substance: OXYTOCIN
     Dosage: 3 ML/HOUR
     Route: 041
     Dates: start: 20110505, end: 20110505
  5. NATISPRAY [Concomitant]
     Active Substance: NITROGLYCERIN
     Dosage: 2 PUFFS
  6. SYNTOCINON [Suspect]
     Active Substance: OXYTOCIN
     Indication: LABOUR INDUCTION
     Dosage: 5 IU/50 ML, 1.5 ML/HOUR
     Route: 041
     Dates: start: 20110505
  7. ATARAX [Concomitant]
     Active Substance: HYDROXYZINE\HYDROXYZINE HYDROCHLORIDE
     Dosage: 150 MG, UNK

REACTIONS (2)
  - Off label use [Recovered/Resolved]
  - Uterine hypertonus [Recovered/Resolved]

NARRATIVE: CASE EVENT DATE: 20110505
